FAERS Safety Report 10361043 (Version 1)
Quarter: 2014Q3

REPORT INFORMATION
  Report Type: Spontaneous
  Country: BR (occurrence: BR)
  Receive Date: 20140804
  Receipt Date: 20140804
  Transmission Date: 20150326
  Serious: Yes (Congenital Anomaly)
  Sender: FDA-Public Use
  Company Number: BR-SA-2014SA100630

PATIENT
  Sex: Male

DRUGS (1)
  1. LANTUS [Suspect]
     Active Substance: INSULIN GLARGINE
     Indication: MATERNAL EXPOSURE TIMING UNSPECIFIED
     Route: 064
     Dates: end: 20081202

REACTIONS (7)
  - Motor developmental delay [Recovered/Resolved]
  - Cardiac septal defect [Recovered/Resolved]
  - Hereditary disorder [Unknown]
  - Foetal exposure during pregnancy [Unknown]
  - Dyspnoea [Recovered/Resolved]
  - Congenital cardiovascular anomaly [Recovered/Resolved]
  - Supravalvular aortic stenosis [Not Recovered/Not Resolved]

NARRATIVE: CASE EVENT DATE: 20081202
